FAERS Safety Report 7174697-X (Version None)
Quarter: 2010Q4

REPORT INFORMATION
  Report Type: 
  Country: None (occurrence: None)
  Receive Date: 20101219
  Receipt Date: 20100406
  Transmission Date: 20110411
  Serious: No
  Sender: FDA-Public Use
  Company Number: US-AMGEN-QUU399116

PATIENT

DRUGS (1)
  1. ENBREL [Suspect]
     Indication: RHEUMATOID ARTHRITIS
     Dosage: 50 MG, QWK
     Route: 058
     Dates: start: 20090605

REACTIONS (7)
  - COUGH [None]
  - DYSPNOEA [None]
  - PANIC REACTION [None]
  - PERFUME SENSITIVITY [None]
  - RHINORRHOEA [None]
  - SNEEZING [None]
  - UPPER RESPIRATORY TRACT INFECTION [None]
